FAERS Safety Report 6640031-4 (Version None)
Quarter: 2010Q1

REPORT INFORMATION
  Report Type: 
  Country: None (occurrence: None)
  Receive Date: 20100318
  Receipt Date: 20100311
  Transmission Date: 20100710
  Serious: Yes (Life-Threatening)
  Sender: FDA-Public Use
  Company Number: PHEH2010US03065

PATIENT
  Sex: Female

DRUGS (8)
  1. FOCALIN XR [Suspect]
     Dosage: 40 MG, UNK
  2. RITALIN [Suspect]
  3. NORGESIC                                /CAN/ [Concomitant]
  4. PROTONIX [Concomitant]
  5. NEURONTIN [Concomitant]
  6. LYRICA [Concomitant]
  7. EMITEX                             /00014902/ [Concomitant]
  8. KEPPRA [Concomitant]

REACTIONS (3)
  - BLOOD CARBON MONOXIDE [None]
  - CONVULSION [None]
  - SYSTEMIC LUPUS ERYTHEMATOSUS [None]
